FAERS Safety Report 8779990 (Version 1)
Quarter: 2012Q4

REPORT INFORMATION
  Report Type: Spontaneous
  Country: US (occurrence: None)
  Receive Date: 20120831
  Receipt Date: 20120831
  Transmission Date: 20130627
  Serious: Yes (Other)
  Sender: FDA-Public Use
  Company Number: None

PATIENT
  Age: 59 Year
  Sex: Female
  Weight: 63.05 kg

DRUGS (1)
  1. CYMBALTA [Suspect]
     Dosage: 1 x per day
     Dates: start: 20120818, end: 20120819

REACTIONS (5)
  - Dyspnoea [None]
  - Headache [None]
  - Nausea [None]
  - Anxiety [None]
  - Muscular weakness [None]
